FAERS Safety Report 5239580-5 (Version None)
Quarter: 2007Q1

REPORT INFORMATION
  Report Type: 
  Country: None (occurrence: None)
  Receive Date: 20070216
  Receipt Date: 20070206
  Transmission Date: 20070707
  Serious: Yes (Hospitalization)
  Sender: FDA-Public Use
  Company Number: 2007SE00379

PATIENT
  Age: 17765 Day
  Sex: Male
  Weight: 63 kg

DRUGS (5)
  1. MERONEM [Suspect]
     Indication: MENINGITIS
     Route: 042
     Dates: start: 20061230, end: 20070112
  2. VANCOMYCINUM [Concomitant]
     Indication: MENINGITIS
     Route: 042
     Dates: start: 20061230, end: 20070108
  3. RANITIDINUM [Concomitant]
     Indication: PROPHYLAXIS
     Route: 042
     Dates: start: 20061230
  4. HUMAN INSULIN [Concomitant]
     Indication: DIABETES MELLITUS
     Route: 058
  5. DEXAMETHASONUM [Concomitant]
     Indication: OEDEMA
     Route: 042
     Dates: start: 20061230, end: 20070104

REACTIONS (1)
  - METABOLIC ALKALOSIS [None]
